FAERS Safety Report 13442529 (Version 1)
Quarter: 2017Q2

REPORT INFORMATION
  Report Type: Spontaneous
  Country: US (occurrence: US)
  Receive Date: 20170414
  Receipt Date: 20170414
  Transmission Date: 20170830
  Serious: No
  Sender: FDA-Public Use
  Company Number: US-009507513-1704USA002239

PATIENT

DRUGS (1)
  1. SYLATRON [Suspect]
     Active Substance: PEGINTERFERON ALFA-2B
     Indication: THROMBOCYTOSIS
     Dosage: 48 MCG, ONCE WEEKLY
     Route: 058

REACTIONS (2)
  - Product use in unapproved indication [Unknown]
  - No adverse event [Unknown]
